FAERS Safety Report 13560879 (Version 1)
Quarter: 2017Q2

REPORT INFORMATION
  Report Type: Spontaneous
  Country: US (occurrence: US)
  Receive Date: 20170518
  Receipt Date: 20170518
  Transmission Date: 20170830
  Serious: No
  Sender: FDA-Public Use
  Company Number: US-ROCHE-1140960

PATIENT
  Sex: Male

DRUGS (2)
  1. TYLENOL #3 (UNITED STATES) [Concomitant]
  2. NAPROSYN [Suspect]
     Active Substance: NAPROXEN
     Indication: PAIN

REACTIONS (2)
  - Rash [Unknown]
  - Swelling [Unknown]
